FAERS Safety Report 8388524-6 (Version None)
Quarter: 2012Q2

REPORT INFORMATION
  Report Type: 
  Country: None (occurrence: None)
  Receive Date: 20120525
  Receipt Date: 20120511
  Transmission Date: 20120825
  Serious: Yes (Other)
  Sender: FDA-Public Use
  Company Number: CHPA2012US000474

PATIENT
  Age: 67 Year
  Sex: Female

DRUGS (2)
  1. DRUG THERAPY NOS [Suspect]
     Dosage: UNK, UNK
  2. MAALOX ANTACID/ANTIGAS RS LIQ COOL MINT [Suspect]
     Indication: GASTROOESOPHAGEAL REFLUX DISEASE
     Dosage: 4 TO 5 TEASPOONS DURING THE DAY, 6 TEASPOONS AT NIGHT
     Route: 048
     Dates: start: 20070301

REACTIONS (8)
  - INCORRECT DRUG ADMINISTRATION DURATION [None]
  - NERVOUSNESS [None]
  - OFF LABEL USE [None]
  - INCORRECT DOSE ADMINISTERED [None]
  - HEMIPARESIS [None]
  - ASTHENIA [None]
  - PARKINSON'S DISEASE [None]
  - TREMOR [None]
